FAERS Safety Report 12388056 (Version 1)
Quarter: 2016Q2

REPORT INFORMATION
  Report Type: Spontaneous
  Country: TN (occurrence: TN)
  Receive Date: 20160520
  Receipt Date: 20160520
  Transmission Date: 20160815
  Serious: Yes (Hospitalization)
  Sender: FDA-Public Use
  Company Number: TN-ACCORD-040741

PATIENT
  Age: 33 Year
  Sex: Male

DRUGS (10)
  1. VENLAFAXINE/VENLAFAXINE HYDROCHLORIDE [Suspect]
     Active Substance: VENLAFAXINE HYDROCHLORIDE
     Indication: BORDERLINE PERSONALITY DISORDER
     Dosage: RECEIVED AS ANTI-DEPRESSIVE TREATMENTS
  2. PAROXETINE. [Suspect]
     Active Substance: PAROXETINE
     Indication: BORDERLINE PERSONALITY DISORDER
     Dosage: RECEIVED AS ANTI-DEPRESSIVE TREATMENTS
  3. OLANZAPINE. [Suspect]
     Active Substance: OLANZAPINE
     Indication: BORDERLINE PERSONALITY DISORDER
     Dosage: RECEIVED AS MOOD STABILIZERS
  4. ESCITALOPRAM [Suspect]
     Active Substance: ESCITALOPRAM OXALATE
     Indication: BORDERLINE PERSONALITY DISORDER
     Dosage: RECEIVED AS ANTI-DEPRESSIVE TREATMENTS
  5. CLOMIPRAMINE [Suspect]
     Active Substance: CLOMIPRAMINE
     Indication: BORDERLINE PERSONALITY DISORDER
     Dosage: RECEIVED AS ANTI-DEPRESSIVE TREATMENTS
  6. RISPERIDONE. [Suspect]
     Active Substance: RISPERIDONE
     Indication: BORDERLINE PERSONALITY DISORDER
     Dosage: RECEIVED AS MOOD STABILIZERS
  7. LITHIUM. [Suspect]
     Active Substance: LITHIUM
     Indication: BORDERLINE PERSONALITY DISORDER
     Dosage: RECEIVED AS MOOD STABILIZERS
  8. SERTRALINE [Suspect]
     Active Substance: SERTRALINE HYDROCHLORIDE
     Indication: BORDERLINE PERSONALITY DISORDER
     Dosage: RECEIVED AS ANTI-DEPRESSIVE TREATMENTS
  9. AMISULPRIDE [Suspect]
     Active Substance: AMISULPRIDE
     Indication: BORDERLINE PERSONALITY DISORDER
     Dosage: RECEIVED AS MOOD STABILIZERS
  10. LAMOTRIGINE. [Suspect]
     Active Substance: LAMOTRIGINE
     Indication: BORDERLINE PERSONALITY DISORDER
     Dosage: RECEIVED AS MOOD STABILIZERS

REACTIONS (1)
  - Treatment failure [Unknown]
